FAERS Safety Report 6314282-2 (Version None)
Quarter: 2009Q3

REPORT INFORMATION
  Report Type: 
  Country: None (occurrence: None)
  Receive Date: 20090817
  Receipt Date: 20090809
  Transmission Date: 20100115
  Serious: Yes (Hospitalization)
  Sender: FDA-Public Use
  Company Number: 230004K09TUR

PATIENT
  Age: 39 Year

DRUGS (1)
  1. REBIF [Suspect]
     Indication: MULTIPLE SCLEROSIS
     Dates: start: 20090701

REACTIONS (4)
  - BRAIN NEOPLASM [None]
  - DYSPNOEA [None]
  - LYMPHOMA [None]
  - UNRESPONSIVE TO STIMULI [None]
